FAERS Safety Report 7790265-0 (Version None)
Quarter: 2011Q3

REPORT INFORMATION
  Report Type: 
  Country: None (occurrence: None)
  Receive Date: 20110930
  Receipt Date: 20110923
  Transmission Date: 20111222
  Serious: Yes (Life-Threatening, Hospitalization)
  Sender: FDA-Public Use
  Company Number: US-BAYER-2011-030929

PATIENT
  Age: 39 Year
  Sex: Female
  Weight: 77.098 kg

DRUGS (11)
  1. OXYBUTYNIN CHLORIDE [Concomitant]
     Indication: MULTIPLE SCLEROSIS
     Dosage: UNK
     Dates: start: 20000101
  2. PROVIGIL [Concomitant]
     Indication: MULTIPLE SCLEROSIS
     Dosage: UNK
     Dates: start: 20000101, end: 20110901
  3. DROSPIRENONE AND ETHINYL ESTRADIOL [Suspect]
     Indication: MENSTRUATION IRREGULAR
     Dosage: UNK
     Route: 048
     Dates: start: 20050101, end: 20090801
  4. TYSABRI [Concomitant]
     Dosage: 300 MG, Q1MON
     Route: 042
     Dates: start: 20090825
  5. YASMIN [Suspect]
     Indication: MENSTRUATION IRREGULAR
     Dosage: UNK
     Dates: start: 20050101, end: 20090801
  6. PAROXETINE HCL [Concomitant]
     Dosage: 12.5 MG, QD
     Route: 048
     Dates: start: 20090825
  7. SYNTHROID [Concomitant]
     Dosage: UNK
     Dates: end: 20090825
  8. BACLOFEN [Concomitant]
     Indication: MULTIPLE SCLEROSIS
     Dosage: 20 MG, TID
     Route: 048
     Dates: start: 19970101
  9. LEVOTHYROXINE SODIUM [Concomitant]
     Dosage: 25 MCG/24HR, QD
     Route: 048
     Dates: start: 20090825
  10. DETROL LA [Concomitant]
     Indication: MULTIPLE SCLEROSIS
     Dosage: UNK
     Dates: start: 20000101, end: 20110901
  11. CARBAMAZEPINE [Concomitant]
     Indication: MULTIPLE SCLEROSIS
     Dosage: 200 MG, PRN
     Route: 048
     Dates: start: 20090101

REACTIONS (7)
  - GENERAL PHYSICAL HEALTH DETERIORATION [None]
  - PAIN [None]
  - PULMONARY EMBOLISM [None]
  - ANXIETY [None]
  - THROMBOSIS [None]
  - DEEP VEIN THROMBOSIS [None]
  - ANHEDONIA [None]
